FAERS Safety Report 6430726-X (Version None)
Quarter: 2009Q4

REPORT INFORMATION
  Report Type: 
  Country: None (occurrence: None)
  Receive Date: 20091105
  Receipt Date: 20091105
  Transmission Date: 20100525
  Serious: Yes (Hospitalization)
  Sender: FDA-Public Use
  Company Number: None

PATIENT
  Sex: Female
  Weight: 158 kg

DRUGS (6)
  1. CYCLOPHOSPHAMIDE [Suspect]
     Dosage: 5450 MG
  2. CYTARABINE [Suspect]
     Dosage: 5248 MG
  3. MERCAPTOPURINE [Suspect]
     Dosage: 4400 MG
  4. METHOTREXATE [Suspect]
     Dosage: 60 MG
  5. PEG-L-ASPARAGINASE (K-H) [Suspect]
     Dosage: 6775 IU
  6. VINCRISTINE SULFATE [Suspect]
     Dosage: 2 MG

REACTIONS (11)
  - BLOOD IMMUNOGLOBULIN G DECREASED [None]
  - CANDIDIASIS [None]
  - DEEP VEIN THROMBOSIS [None]
  - LUNG NEOPLASM [None]
  - NEUTROPHIL COUNT DECREASED [None]
  - PLATELET COUNT ABNORMAL [None]
  - PURULENT DISCHARGE [None]
  - PYREXIA [None]
  - WHITE BLOOD CELL COUNT DECREASED [None]
  - WOUND INFECTION FUNGAL [None]
  - WOUND NECROSIS [None]
